FAERS Safety Report 17408014 (Version 3)
Quarter: 2020Q1

REPORT INFORMATION
  Report Type: Spontaneous
  Country: US (occurrence: US)
  Receive Date: 20200212
  Receipt Date: 20200330
  Transmission Date: 20200409
  Serious: No
  Sender: FDA-Public Use
  Company Number: US-PFIZER INC-2020060238

PATIENT
  Sex: Female
  Weight: 52.16 kg

DRUGS (1)
  1. ESTROGENS CONJUGATED [Suspect]
     Active Substance: ESTROGENS, CONJUGATED
     Indication: HYSTERECTOMY
     Dosage: 0.625 MG, 1X/DAY
     Route: 048

REACTIONS (5)
  - Product use in unapproved indication [Unknown]
  - Off label use [Unknown]
  - Nightmare [Unknown]
  - Depression [Recovered/Resolved]
  - Hot flush [Unknown]
